FAERS Safety Report 9355288 (Version 1)
Quarter: 2013Q2

REPORT INFORMATION
  Report Type: Spontaneous
  Country: US (occurrence: US)
  Receive Date: 20130619
  Receipt Date: 20130619
  Transmission Date: 20140414
  Serious: No
  Sender: FDA-Public Use
  Company Number: US-ROXANE LABORATORIES, INC.-2013-RO-00966RO

PATIENT
  Sex: Male

DRUGS (1)
  1. MORPHINE [Suspect]
     Dosage: 90 MG

REACTIONS (1)
  - Drug dependence [Unknown]
